FAERS Safety Report 24573883 (Version 1)
Quarter: 2024Q4

REPORT INFORMATION
  Report Type: Other
  Country: IT (occurrence: IT)
  Receive Date: 20241104
  Receipt Date: 20241104
  Transmission Date: 20250114
  Serious: Yes (Other)
  Sender: ADAPTIS PHARMA INDIA
  Company Number: IT-Adaptis Pharma Private Limited-2164339

PATIENT
  Age: 27 Year
  Sex: Male

DRUGS (1)
  1. IBUPROFEN [Suspect]
     Active Substance: IBUPROFEN
     Indication: Back pain

REACTIONS (3)
  - Diplopia [Recovered/Resolved]
  - Toxicity to various agents [Recovered/Resolved]
  - Heterophoria [Recovered/Resolved]
